FAERS Safety Report 4489503-1 (Version None)
Quarter: 2004Q4

REPORT INFORMATION
  Report Type: 
  Country: None (occurrence: None)
  Receive Date: 20041101
  Receipt Date: 20041023
  Transmission Date: 20050328
  Serious: Yes (Hospitalization, Other)
  Sender: FDA-Public Use
  Company Number: PHFR2004GB03962

PATIENT
  Sex: Male

DRUGS (1)
  1. CLOZARIL [Suspect]
     Indication: SCHIZOPHRENIA
     Dosage: 50MG ACCIDENTAL EXPOSURE
     Route: 048
     Dates: start: 20041022, end: 20041022

REACTIONS (2)
  - ACCIDENTAL EXPOSURE [None]
  - FEELING ABNORMAL [None]
